FAERS Safety Report 17969917 (Version 1)
Quarter: 2020Q3

REPORT INFORMATION
  Report Type: Spontaneous
  Country: GB (occurrence: GB)
  Receive Date: 20200701
  Receipt Date: 20200701
  Transmission Date: 20201103
  Serious: Yes (Disabling)
  Sender: FDA-Public Use
  Company Number: GB-PERRIGO-20GB009357

PATIENT
  Age: 79 Year
  Sex: Female

DRUGS (9)
  1. NORZOL 40MG/ML PL00427/0068 [Suspect]
     Active Substance: METRONIDAZOLE BENZOATE
     Indication: PRODUCT USED FOR UNKNOWN INDICATION
     Dosage: 1200 MG, QD
     Route: 048
     Dates: start: 20200603
  2. COCODAMOL [Concomitant]
     Active Substance: ACETAMINOPHEN\CODEINE PHOSPHATE
     Dosage: 2 QDS PRN, 30MG/500MG
     Route: 048
  3. ATENOLOL. [Concomitant]
     Active Substance: ATENOLOL
     Dosage: MORNING
     Route: 048
  4. ALENDRONIC ACID [Concomitant]
     Active Substance: ALENDRONIC ACID
     Route: 048
  5. ADCAL D3 [Concomitant]
     Active Substance: CALCIUM CARBONATE\CHOLECALCIFEROL
     Dosage: 2 DF, QD
     Route: 048
  6. LACTULOSE. [Concomitant]
     Active Substance: LACTULOSE
     Dosage: 3.1?3.7G/5ML
     Route: 048
  7. ATORVASTATIN [Concomitant]
     Active Substance: ATORVASTATIN
     Dosage: NIGHT
     Route: 048
  8. COTRIMOXAZOLE [Suspect]
     Active Substance: SULFAMETHOXAZOLE\TRIMETHOPRIM
     Indication: PRODUCT USED FOR UNKNOWN INDICATION
     Dosage: 1 WEEK COURSE
     Route: 048
     Dates: start: 20200603
  9. ACETYLSALICYLIC ACID [Concomitant]
     Active Substance: ASPIRIN
     Route: 048

REACTIONS (1)
  - Muscular weakness [Unknown]

NARRATIVE: CASE EVENT DATE: 20200605
